FAERS Safety Report 24104187 (Version 1)
Quarter: 2024Q3

REPORT INFORMATION
  Report Type: Report from Study
  Country: CO (occurrence: CO)
  Receive Date: 20240717
  Receipt Date: 20240717
  Transmission Date: 20241017
  Serious: Yes (Hospitalization, Other)
  Sender: ABBVIE
  Company Number: CO-ABBVIE-5805321

PATIENT
  Age: 81 Year
  Sex: Male
  Weight: 59 kg

DRUGS (1)
  1. VENCLEXTA [Suspect]
     Active Substance: VENETOCLAX
     Indication: Chronic lymphocytic leukaemia
     Dosage: FORM STRENGTH:100 MILLIGRAM
     Route: 048
     Dates: start: 20220805, end: 20240529

REACTIONS (7)
  - Abscess limb [Unknown]
  - Chronic lymphocytic leukaemia [Recovering/Resolving]
  - Platelet count decreased [Unknown]
  - Unevaluable event [Recovering/Resolving]
  - Drug ineffective [Unknown]
  - Influenza [Unknown]
  - Viral infection [Unknown]

NARRATIVE: CASE EVENT DATE: 20240501
